FAERS Safety Report 20091864 (Version 2)
Quarter: 2021Q4

REPORT INFORMATION
  Report Type: Spontaneous
  Country: CN (occurrence: None)
  Receive Date: 20211119
  Receipt Date: 20211124
  Transmission Date: 20220303
  Serious: Yes (Death, Hospitalization, Other)
  Sender: FDA-Public Use
  Company Number: 2021A811353

PATIENT
  Age: 80 Year
  Sex: Female

DRUGS (2)
  1. TAGRISSO [Suspect]
     Active Substance: OSIMERTINIB
     Indication: Lung adenocarcinoma
     Dosage: UNKNOWN
     Route: 048
     Dates: start: 20211011, end: 20211106
  2. TAGRISSO [Suspect]
     Active Substance: OSIMERTINIB
     Indication: EGFR gene mutation
     Dosage: UNKNOWN
     Route: 048
     Dates: start: 20211011, end: 20211106

REACTIONS (7)
  - Platelet count decreased [Unknown]
  - Coma [Unknown]
  - Cerebral haemorrhage [Fatal]
  - Diarrhoea [Unknown]
  - Intraventricular haemorrhage [Unknown]
  - Subarachnoid haemorrhage [Unknown]
  - Subdural haematoma [Unknown]

NARRATIVE: CASE EVENT DATE: 20211106
